FAERS Safety Report 17156533 (Version 1)
Quarter: 2019Q4

REPORT INFORMATION
  Report Type: Spontaneous
  Country: CA (occurrence: CA)
  Receive Date: 20191216
  Receipt Date: 20191216
  Transmission Date: 20200122
  Serious: Yes (Other)
  Sender: FDA-Public Use
  Company Number: CA-ROCHE-2492080

PATIENT
  Age: 28 Year
  Sex: Male

DRUGS (11)
  1. PRASTERONE [Suspect]
     Active Substance: PRASTERONE
     Indication: HYPERTHYROIDISM
     Route: 065
  2. SALBUTAMOL [Concomitant]
     Active Substance: ALBUTEROL
     Route: 065
  3. COENZYME Q10 [Concomitant]
     Active Substance: UBIDECARENONE
     Route: 065
  4. OMEGA 3 FISH OILS [Concomitant]
     Active Substance: OMEGA-3 FATTY ACIDS
     Route: 065
  5. SEVELAMER [Concomitant]
     Active Substance: SEVELAMER
     Route: 065
  6. ACETYLCARNITINE HYDROCHLORIDE [Concomitant]
     Active Substance: LEVACECARNINE HYDROCHLORIDE
  7. FLUTICASONE. [Concomitant]
     Active Substance: FLUTICASONE
     Route: 065
  8. MULTIVITAMINS [VITAMINS NOS] [Concomitant]
     Active Substance: VITAMINS
     Route: 065
  9. CALCITRIOL. [Concomitant]
     Active Substance: CALCITRIOL
     Route: 065
  10. SOMATROPIN. [Suspect]
     Active Substance: SOMATROPIN
     Indication: HYPERTHYROIDISM
     Route: 065
  11. GLUTAMINE [Concomitant]
     Active Substance: GLUTAMINE
     Route: 065

REACTIONS (6)
  - Blood parathyroid hormone increased [Not Recovered/Not Resolved]
  - Osteoporosis [Not Recovered/Not Resolved]
  - Fall [Unknown]
  - Blood alkaline phosphatase increased [Not Recovered/Not Resolved]
  - Tendon rupture [Not Recovered/Not Resolved]
  - Tendon calcification [Not Recovered/Not Resolved]
